FAERS Safety Report 6093170-3 (Version None)
Quarter: 2009Q1

REPORT INFORMATION
  Report Type: 
  Country: None (occurrence: None)
  Receive Date: 20090226
  Receipt Date: 20090220
  Transmission Date: 20090719
  Serious: Yes (Other)
  Sender: FDA-Public Use
  Company Number: US-ELI_LILLY_AND_COMPANY-US200902005196

PATIENT
  Sex: Male

DRUGS (2)
  1. BYETTA [Suspect]
     Indication: TYPE 2 DIABETES MELLITUS
     Dosage: 10 UG, 2/D
     Route: 058
     Dates: start: 20081101
  2. TRICOR [Concomitant]
     Dosage: UNK, UNKNOWN

REACTIONS (7)
  - ANXIETY [None]
  - DYSPNOEA [None]
  - HILAR LYMPHADENOPATHY [None]
  - LYMPHADENOPATHY MEDIASTINAL [None]
  - PRODUCTIVE COUGH [None]
  - PULMONARY CONGESTION [None]
  - WHEEZING [None]
